FAERS Safety Report 19198394 (Version 1)
Quarter: 2021Q2

REPORT INFORMATION
  Report Type: Spontaneous
  Country: GB (occurrence: GB)
  Receive Date: 20210430
  Receipt Date: 20210430
  Transmission Date: 20210717
  Serious: Yes (Other)
  Sender: FDA-Public Use
  Company Number: GB-AUROBINDO-AUR-APL-2021-017248

PATIENT
  Age: 47 Year
  Sex: Female
  Weight: 88 kg

DRUGS (4)
  1. ASTRAZENECA COVID?19 VACCINE [Concomitant]
     Active Substance: AZD-1222
     Dosage: 1 DOSE BY INTRAMUSCULAR INJECTION
     Route: 065
     Dates: start: 20210413, end: 20210413
  2. OXYBUTYNIN. [Concomitant]
     Active Substance: OXYBUTYNIN CHLORIDE
     Indication: PRODUCT USED FOR UNKNOWN INDICATION
     Dosage: UNK
     Route: 065
  3. PRAVASTATIN TABLET [Suspect]
     Active Substance: PRAVASTATIN
     Indication: TYPE 2 DIABETES MELLITUS
     Dosage: 20 MILLIGRAM, ONCE A DAY (AT NIGHT)
     Route: 065
     Dates: start: 20210410, end: 20210416
  4. ASTRAZENECA COVID?19 VACCINE [Concomitant]
     Active Substance: AZD-1222
     Indication: COVID-19 IMMUNISATION
     Dosage: 1 DOSE BY INTRAMUSCULAR INJECTION
     Route: 065
     Dates: start: 20210129, end: 20210129

REACTIONS (2)
  - Bladder spasm [Recovered/Resolved]
  - Bladder pain [Unknown]
